FAERS Safety Report 17292544 (Version 1)
Quarter: 2020Q1

REPORT INFORMATION
  Report Type: Spontaneous
  Country: ES (occurrence: ES)
  Receive Date: 20200121
  Receipt Date: 20200121
  Transmission Date: 20200409
  Serious: Yes (Other)
  Sender: FDA-Public Use
  Company Number: ES-BAYER-2020-002248

PATIENT
  Sex: Female

DRUGS (1)
  1. ULTRAVIST [Suspect]
     Active Substance: IOPROMIDE
     Indication: COMPUTERISED TOMOGRAM
     Dosage: 90 ML, ONCE

REACTIONS (8)
  - Erythema [None]
  - Urticaria [None]
  - Abdominal pain upper [None]
  - Respiratory failure [None]
  - Nausea [None]
  - Tachycardia [None]
  - Swelling face [None]
  - Swelling [None]
